FAERS Safety Report 13426929 (Version 1)
Quarter: 2017Q2

REPORT INFORMATION
  Report Type: Spontaneous
  Country: US (occurrence: US)
  Receive Date: 20170411
  Receipt Date: 20170411
  Transmission Date: 20170830
  Serious: Yes (Death, Hospitalization)
  Sender: FDA-Public Use
  Company Number: None

PATIENT
  Age: 70 Year
  Sex: Female

DRUGS (16)
  1. GABAPENTIN. [Concomitant]
     Active Substance: GABAPENTIN
  2. ATORVASTATIN [Concomitant]
     Active Substance: ATORVASTATIN
  3. ONDANSETRON [Concomitant]
     Active Substance: ONDANSETRON
  4. ALBUTEROL. [Concomitant]
     Active Substance: ALBUTEROL
  5. PANTOPRAZOLE [Concomitant]
     Active Substance: PANTOPRAZOLE
  6. METOPROLOL TARTRATE. [Concomitant]
     Active Substance: METOPROLOL TARTRATE
  7. HYDROCODONE BITARTRATE AND ACETAMINOPHEN [Concomitant]
     Active Substance: ACETAMINOPHEN\HYDROCODONE BITARTRATE
  8. SILDENAFIL. [Concomitant]
     Active Substance: SILDENAFIL
  9. DIGOXIN. [Concomitant]
     Active Substance: DIGOXIN
  10. METHOCARBAMOL. [Concomitant]
     Active Substance: METHOCARBAMOL
  11. WARFARIN [Concomitant]
     Active Substance: WARFARIN
  12. MOMETASONE/FORMOTEROL [Concomitant]
  13. TIOTROPIUM [Concomitant]
     Active Substance: TIOTROPIUM
  14. BUMETANIDE. [Concomitant]
     Active Substance: BUMETANIDE
  15. OPSUMIT [Suspect]
     Active Substance: MACITENTAN
     Indication: PULMONARY ARTERIAL HYPERTENSION
     Route: 048
     Dates: start: 20160709, end: 20170315
  16. PAROXETINE. [Concomitant]
     Active Substance: PAROXETINE

REACTIONS (4)
  - Incarcerated umbilical hernia [None]
  - Respiratory distress [None]
  - Refusal of treatment by relative [None]
  - Pneumothorax [None]

NARRATIVE: CASE EVENT DATE: 20170307
